FAERS Safety Report 5692065-4 (Version None)
Quarter: 2008Q2

REPORT INFORMATION
  Report Type: 
  Country: None (occurrence: None)
  Receive Date: 20080402
  Receipt Date: 20080324
  Transmission Date: 20081010
  Serious: Yes (Hospitalization, Other)
  Sender: FDA-Public Use
  Company Number: JP-PFIZER INC-2007107610

PATIENT
  Sex: Male
  Weight: 88 kg

DRUGS (2)
  1. HALCION [Suspect]
     Indication: SUICIDE ATTEMPT
     Route: 048
     Dates: start: 20071215, end: 20071215
  2. OMEPRAZOLE [Concomitant]

REACTIONS (4)
  - INTENTIONAL OVERDOSE [None]
  - LIVER DISORDER [None]
  - MALAISE [None]
  - PYREXIA [None]
